FAERS Safety Report 18676423 (Version 1)
Quarter: 2020Q4

REPORT INFORMATION
  Report Type: Spontaneous
  Country: DE (occurrence: DE)
  Receive Date: 20201229
  Receipt Date: 20201229
  Transmission Date: 20210114
  Serious: Yes (Other)
  Sender: FDA-Public Use
  Company Number: DE-JNJFOC-20201247334

PATIENT
  Age: 6 Decade
  Sex: Female

DRUGS (5)
  1. BISOPROLOL [Concomitant]
     Active Substance: BISOPROLOL
     Route: 065
     Dates: start: 201412
  2. AZULFIDINE [Concomitant]
     Active Substance: SULFASALAZINE
     Route: 065
     Dates: start: 201012
  3. SIMPONI [Suspect]
     Active Substance: GOLIMUMAB
     Indication: PSORIATIC ARTHROPATHY
     Route: 058
  4. NEXIUM [Concomitant]
     Active Substance: ESOMEPRAZOLE MAGNESIUM
     Route: 065
     Dates: start: 202012
  5. NOVALGIN (METAMIZOLE SODIUM) [Concomitant]
     Active Substance: METAMIZOLE SODIUM
     Route: 065

REACTIONS (3)
  - Tooth abscess [Unknown]
  - Paraesthesia [Not Recovered/Not Resolved]
  - Venous thrombosis [Unknown]

NARRATIVE: CASE EVENT DATE: 20200909
